FAERS Safety Report 12404603 (Version 1)
Quarter: 2016Q2

REPORT INFORMATION
  Report Type: Report from Study
  Country: TR (occurrence: TR)
  Receive Date: 20160525
  Receipt Date: 20160525
  Transmission Date: 20160815
  Serious: Yes (Hospitalization)
  Sender: FDA-Public Use
  Company Number: TR-JNJFOC-20160519931

PATIENT
  Age: 1 Month
  Sex: Male
  Weight: 1.76 kg

DRUGS (1)
  1. TRAMADOL HYDROCHLORIDE. [Suspect]
     Active Substance: TRAMADOL HYDROCHLORIDE
     Indication: PAIN
     Route: 048

REACTIONS (7)
  - Bradycardia [Recovered/Resolved]
  - Decreased activity [Recovered/Resolved]
  - Sedation [Recovered/Resolved]
  - Cyanosis [Recovered/Resolved]
  - Hypopnoea [Recovered/Resolved]
  - Tonic convulsion [Recovered/Resolved]
  - Apnoea [Recovered/Resolved]
